FAERS Safety Report 9484161 (Version 2)
Quarter: 2013Q3

REPORT INFORMATION
  Report Type: Report from Study
  Country: US (occurrence: US)
  Receive Date: 20130828
  Receipt Date: 20130828
  Transmission Date: 20140515
  Serious: Yes (Hospitalization, Other)
  Sender: FDA-Public Use
  Company Number: US-ROCHE-1248018

PATIENT
  Sex: Female

DRUGS (3)
  1. HERCEPTIN [Suspect]
     Indication: HER-2 POSITIVE BREAST CANCER
     Route: 065
  2. KADCYLA [Suspect]
     Indication: BREAST CANCER METASTATIC
     Route: 065
  3. AVAPRO [Concomitant]
     Indication: BLOOD PRESSURE
     Route: 048

REACTIONS (8)
  - Disease recurrence [Unknown]
  - Pleural effusion [Unknown]
  - Cardiac failure congestive [Unknown]
  - Respiratory disorder [Unknown]
  - Pneumonia [Unknown]
  - Skin disorder [Unknown]
  - Aspartate aminotransferase increased [Unknown]
  - Platelet count decreased [Unknown]
